FAERS Safety Report 7540371-0 (Version None)
Quarter: 2011Q2

REPORT INFORMATION
  Report Type: 
  Country: None (occurrence: None)
  Receive Date: 20110610
  Receipt Date: 20110602
  Transmission Date: 20111010
  Serious: Yes (Hospitalization)
  Sender: FDA-Public Use
  Company Number: US-MERCK-1106USA00335

PATIENT
  Age: 16 Year
  Sex: Male

DRUGS (4)
  1. CISPLATIN [Suspect]
     Route: 065
  2. ETOPOSIDE [Suspect]
     Route: 065
  3. DECADRON [Suspect]
     Indication: PROPHYLAXIS OF NAUSEA AND VOMITING
     Route: 048
  4. BLEOMYCIN [Suspect]
     Route: 065

REACTIONS (1)
  - PSYCHOTIC DISORDER [None]
